FAERS Safety Report 10248574 (Version 1)
Quarter: 2014Q2

REPORT INFORMATION
  Report Type: Spontaneous
  Country: US (occurrence: None)
  Receive Date: 20140617
  Receipt Date: 20140617
  Transmission Date: 20141212
  Serious: Yes (Other)
  Sender: FDA-Public Use
  Company Number: None

PATIENT
  Age: 36 Year
  Sex: Male
  Weight: 93.1 kg

DRUGS (1)
  1. AMICAR [Suspect]
     Indication: ENDOSCOPY
     Dates: start: 20140611

REACTIONS (7)
  - Dizziness [None]
  - Nausea [None]
  - Loss of consciousness [None]
  - Fall [None]
  - Anxiety [None]
  - Nervousness [None]
  - Injury [None]
